FAERS Safety Report 9602037 (Version 1)
Quarter: 2013Q4

REPORT INFORMATION
  Report Type: Report from Study
  Country: US (occurrence: US)
  Receive Date: 20131007
  Receipt Date: 20131007
  Transmission Date: 20140711
  Serious: Yes (Hospitalization, Other)
  Sender: FDA-Public Use
  Company Number: US-MYLANLABS-2013S1019139

PATIENT
  Age: 59 Year
  Sex: Male
  Weight: 125 kg

DRUGS (4)
  1. CLOZAPINE TABLETS [Suspect]
     Indication: SCHIZOPHRENIA
     Dates: end: 20130820
  2. CLOZAPINE TABLETS [Suspect]
     Indication: SCHIZOPHRENIA
     Dates: end: 20130820
  3. RIBAVIRIN [Suspect]
     Indication: HEPATITIS C
  4. PEGASYS [Concomitant]
     Indication: HEPATITIS
     Dates: start: 20130725, end: 20130820

REACTIONS (3)
  - Granulocytopenia [Not Recovered/Not Resolved]
  - Leukopenia [Recovered/Resolved]
  - Dehydration [Not Recovered/Not Resolved]
